FAERS Safety Report 25260185 (Version 1)
Quarter: 2025Q2

REPORT INFORMATION
  Report Type: Spontaneous
  Country: US (occurrence: None)
  Receive Date: 20250501
  Receipt Date: 20250501
  Transmission Date: 20250717
  Serious: Yes (Disabling)
  Sender: FDA-CTU
  Company Number: None

PATIENT
  Age: 19 Year
  Sex: Female
  Weight: 56.25 kg

DRUGS (4)
  1. NITROFURANTOIN [Suspect]
     Active Substance: NITROFURANTOIN
     Indication: Urinary tract infection
     Dates: start: 20240623, end: 20240701
  2. AMITRIPTYLINE [Concomitant]
     Active Substance: AMITRIPTYLINE
  3. GABAPENTIN [Concomitant]
     Active Substance: GABAPENTIN
  4. DEMANNOSE [Concomitant]
     Active Substance: DEMANNOSE

REACTIONS (5)
  - Urinary tract infection [None]
  - Drug ineffective [None]
  - Urticaria [None]
  - Neuralgia [None]
  - Impaired quality of life [None]

NARRATIVE: CASE EVENT DATE: 20240623
